FAERS Safety Report 18361539 (Version 1)
Quarter: 2020Q4

REPORT INFORMATION
  Report Type: Spontaneous
  Country: IT (occurrence: IT)
  Receive Date: 20201008
  Receipt Date: 20201008
  Transmission Date: 20210114
  Serious: Yes (Other)
  Sender: FDA-Public Use
  Company Number: NVSC2020IT266315

PATIENT
  Age: 83 Year
  Sex: Female
  Weight: 70 kg

DRUGS (2)
  1. PIPERACILLIN,TAZOBACTAM [Suspect]
     Active Substance: PIPERACILLIN SODIUM\TAZOBACTAM SODIUM
     Indication: CHOLANGITIS
     Dosage: 4.5 G, QD
     Route: 042
     Dates: start: 20200911, end: 20200929
  2. CASPOFUNGIN [Interacting]
     Active Substance: CASPOFUNGIN
     Indication: FUNGAEMIA
     Dosage: 50 MG, QD
     Route: 042
     Dates: start: 20200922

REACTIONS (2)
  - Hypokalaemia [Not Recovered/Not Resolved]
  - Drug interaction [Not Recovered/Not Resolved]

NARRATIVE: CASE EVENT DATE: 20200922
